FAERS Safety Report 22090703 (Version 2)
Quarter: 2023Q2

REPORT INFORMATION
  Report Type: Report from Study
  Country: US (occurrence: US)
  Receive Date: 20230313
  Receipt Date: 20230426
  Transmission Date: 20230721
  Serious: No
  Sender: FDA-Public Use
  Company Number: US-INCYTE CORPORATION-2023IN002236

PATIENT

DRUGS (4)
  1. JAKAFI [Suspect]
     Active Substance: RUXOLITINIB
     Indication: Myelofibrosis
     Dosage: 5 MILLIGRAM
     Route: 065
  2. JAKAFI [Suspect]
     Active Substance: RUXOLITINIB
     Dosage: TWO 5 MG TABLETS A DAY
     Route: 065
     Dates: start: 202212
  3. JAKAFI [Suspect]
     Active Substance: RUXOLITINIB
     Dosage: TWO 5MG TABLETS IN THE MORNING AND ONE 5MG TABLET AT NIGHT
     Route: 065
     Dates: start: 20230222
  4. JAKAFI [Suspect]
     Active Substance: RUXOLITINIB
     Dosage: 5 MILLIGRAM, HE INCREASED IT TO 3 TABLETS
     Route: 048

REACTIONS (3)
  - Anxiety [Unknown]
  - Insomnia [Unknown]
  - Product availability issue [Unknown]
